FAERS Safety Report 6086050-0 (Version None)
Quarter: 2009Q1

REPORT INFORMATION
  Report Type: 
  Country: None (occurrence: None)
  Receive Date: 20090217
  Receipt Date: 20090217
  Transmission Date: 20090719
  Serious: Yes (Hospitalization)
  Sender: FDA-Public Use
  Company Number: None

PATIENT
  Sex: Female
  Weight: 90.7194 kg

DRUGS (1)
  1. SULFAMETHOXAZOLE [Suspect]
     Indication: EAR INFECTION
     Dosage: TWICE PER DAY PO
     Route: 048
     Dates: start: 20090130, end: 20090208

REACTIONS (1)
  - PANCREATITIS [None]
